FAERS Safety Report 4830280-X (Version None)
Quarter: 2005Q4

REPORT INFORMATION
  Report Type: 
  Country: None (occurrence: None)
  Receive Date: 20051117
  Receipt Date: 20050930
  Transmission Date: 20060501
  Serious: Yes (Death)
  Sender: FDA-Public Use
  Company Number: US-MERCK-0510USA01974

PATIENT
  Age: 66 Year
  Sex: Male
  Weight: 80 kg

DRUGS (24)
  1. VIOXX [Suspect]
     Indication: MUSCULOSKELETAL DISORDER
     Route: 048
     Dates: start: 20030515, end: 20041019
  2. ADVAIR DISKUS 100/50 [Concomitant]
     Route: 065
  3. ALLEGRA [Concomitant]
     Route: 065
  4. AVAPRO [Concomitant]
     Route: 065
  5. BEXTRA [Concomitant]
     Route: 065
  6. COLCHICINE [Concomitant]
     Route: 065
  7. DEMADEX [Concomitant]
     Route: 065
  8. DIAZEPAM [Concomitant]
     Route: 065
  9. DRITUSS G [Concomitant]
     Route: 065
  10. FEOSOL [Concomitant]
     Route: 065
  11. ACETAMINOPHEN AND HYDROCODONE BITARTRATE [Concomitant]
     Route: 065
  12. KLOR-CON [Concomitant]
     Route: 065
  13. LIDODERM [Concomitant]
     Route: 065
  14. MAGNESIUM CHLORIDE [Concomitant]
     Route: 065
  15. MUCINEX [Concomitant]
     Route: 065
  16. NITROQUICK [Concomitant]
     Route: 065
  17. OS-CAL 500 + D [Concomitant]
     Route: 065
  18. OXYCONTIN [Concomitant]
     Route: 065
  19. PROTONIX [Concomitant]
     Route: 065
  20. SKELAXIN [Concomitant]
     Route: 065
  21. TARKA [Concomitant]
     Route: 065
  22. TEGRETOL-XR [Concomitant]
     Route: 065
  23. ULTRACET [Concomitant]
     Route: 065
  24. VERELAN PM [Concomitant]
     Route: 065

REACTIONS (1)
  - MYOCARDIAL INFARCTION [None]
